FAERS Safety Report 7061661-4 (Version None)
Quarter: 2010Q4

REPORT INFORMATION
  Report Type: 
  Country: None (occurrence: None)
  Receive Date: 20101026
  Receipt Date: 20101019
  Transmission Date: 20110411
  Serious: Yes (Other)
  Sender: FDA-Public Use
  Company Number: US-US-EMD SERONO, INC.-7023329

PATIENT
  Sex: Female

DRUGS (1)
  1. REBIF [Suspect]
     Indication: PRODUCT USED FOR UNKNOWN INDICATION
     Route: 058
     Dates: start: 20051024

REACTIONS (8)
  - ASTHMA [None]
  - CENTRAL NERVOUS SYSTEM LESION [None]
  - DEPRESSION [None]
  - MEMORY IMPAIRMENT [None]
  - NASOPHARYNGITIS [None]
  - NERVOUSNESS [None]
  - UMBILICAL HERNIA [None]
  - VASCULAR INJURY [None]
